FAERS Safety Report 4617031-9 (Version None)
Quarter: 2005Q1

REPORT INFORMATION
  Report Type: 
  Country: None (occurrence: None)
  Receive Date: 20050323
  Receipt Date: 20050105
  Transmission Date: 20050727
  Serious: Yes (Hospitalization)
  Sender: FDA-Public Use
  Company Number: PHBS2005JP00539

PATIENT
  Age: 33 Year
  Sex: Female

DRUGS (5)
  1. VOLTAREN [Suspect]
     Dosage: 50 MG/DAY
     Route: 054
  2. VOLTAREN [Suspect]
     Dosage: 25 MG/DAY
     Route: 048
  3. ANTIBIOTICS [Suspect]
  4. PL GRAN. [Concomitant]
  5. LOXOPROFEN [Concomitant]

REACTIONS (3)
  - C-REACTIVE PROTEIN INCREASED [None]
  - EXANTHEM [None]
  - LIVER DISORDER [None]
